FAERS Safety Report 13845330 (Version 1)
Quarter: 2017Q3

REPORT INFORMATION
  Report Type: Spontaneous
  Country: US (occurrence: US)
  Receive Date: 20170808
  Receipt Date: 20170808
  Transmission Date: 20171127
  Serious: No
  Sender: FDA-Public Use
  Company Number: US-SA-2017SA102841

PATIENT
  Age: 24 Month
  Sex: Male

DRUGS (1)
  1. CHILDRENS XYZAL ALLERGY 24HR [Suspect]
     Active Substance: LEVOCETIRIZINE DIHYDROCHLORIDE
     Dosage: 2 - 2.5ML
     Route: 048
     Dates: start: 20170606, end: 20170606

REACTIONS (1)
  - Product use issue [Unknown]
